FAERS Safety Report 7021486-2 (Version None)
Quarter: 2010Q3

REPORT INFORMATION
  Report Type: 
  Country: None (occurrence: None)
  Receive Date: 20100929
  Receipt Date: 20100923
  Transmission Date: 20110219
  Serious: Yes (Life-Threatening, Hospitalization)
  Sender: FDA-Public Use
  Company Number: CA-MERCK-1009USA04924

PATIENT
  Age: 47 Year
  Sex: Female
  Weight: 54 kg

DRUGS (25)
  1. PRIMAXIN [Suspect]
     Route: 042
  2. ACETAMINOPHEN [Concomitant]
     Route: 065
  3. CALCIUM CARBONATE [Concomitant]
     Route: 065
  4. CLOTRIMAZOLE [Concomitant]
     Route: 065
  5. CARVEDILOL [Concomitant]
     Route: 065
  6. CITALOPRAM [Concomitant]
     Route: 065
  7. CLONIDINE [Concomitant]
     Route: 065
  8. ENOXAPARIN SODIUM [Concomitant]
     Route: 065
  9. ASPIRIN [Concomitant]
     Route: 065
  10. FOLIC ACID [Concomitant]
     Route: 065
  11. GRAVOL TAB [Concomitant]
     Route: 065
  12. HEPARIN [Concomitant]
     Route: 058
  13. HUMALOG [Concomitant]
     Route: 065
  14. LACTASE [Concomitant]
     Route: 065
  15. LANTUS [Concomitant]
     Route: 065
  16. LOPERAMIDE HYDROCHLORIDE [Concomitant]
     Route: 065
  17. LYRICA [Concomitant]
     Route: 065
  18. NORVASC [Concomitant]
     Route: 065
  19. PANCRELIPASE [Concomitant]
     Route: 065
  20. PANTOLOC [Concomitant]
     Route: 065
  21. PLAVIX [Concomitant]
     Route: 065
  22. PREVACID [Concomitant]
     Route: 065
  23. SOLU-CORTEF [Concomitant]
     Route: 065
  24. VANCOMYCIN [Concomitant]
     Route: 048
  25. VENTOLIN [Concomitant]
     Route: 065

REACTIONS (3)
  - ENDOTRACHEAL INTUBATION [None]
  - GRAND MAL CONVULSION [None]
  - MYOCLONUS [None]
